FAERS Safety Report 18015089 (Version 1)
Quarter: 2020Q3

REPORT INFORMATION
  Report Type: Spontaneous
  Country: US (occurrence: US)
  Receive Date: 20200713
  Receipt Date: 20200713
  Transmission Date: 20201103
  Serious: No
  Sender: FDA-Public Use
  Company Number: US-FOUNDATIONCONSUMERHC-2020-US-011639

PATIENT
  Age: 18 Year
  Sex: Female

DRUGS (2)
  1. PLAN B ONE?STEP [Suspect]
     Active Substance: LEVONORGESTREL
     Indication: POST COITAL CONTRACEPTION
     Dosage: 1.5MG X 1 DOSE
     Route: 048
     Dates: start: 20190902, end: 20190902
  2. COCAINE [Concomitant]
     Active Substance: COCAINE

REACTIONS (2)
  - Weight increased [Unknown]
  - Dysmenorrhoea [Recovered/Resolved]

NARRATIVE: CASE EVENT DATE: 201909
